FAERS Safety Report 18190972 (Version 1)
Quarter: 2020Q3

REPORT INFORMATION
  Report Type: Spontaneous
  Country: US (occurrence: US)
  Receive Date: 20200824
  Receipt Date: 20200824
  Transmission Date: 20201103
  Serious: Yes (Death)
  Sender: FDA-Public Use
  Company Number: None

PATIENT
  Age: 45 Year
  Sex: Male
  Weight: 62.14 kg

DRUGS (2)
  1. REMDESIVIR. [Suspect]
     Active Substance: REMDESIVIR
     Indication: COVID-19 TREATMENT
  2. N/A [Concomitant]
     Active Substance: UNSPECIFIED INGREDIENT

REACTIONS (14)
  - Respiratory depression [None]
  - Mental disorder [None]
  - Urinary tract candidiasis [None]
  - Pneumonia streptococcal [None]
  - Pneumoperitoneum [None]
  - Hypoxia [None]
  - Complication associated with device [None]
  - Pneumothorax [None]
  - Intestinal perforation [None]
  - General physical health deterioration [None]
  - Haemodialysis [None]
  - Encephalitis [None]
  - Renal impairment [None]
  - Pneumonia klebsiella [None]

NARRATIVE: CASE EVENT DATE: 20200811
